FAERS Safety Report 10977503 (Version 1)
Quarter: 2015Q2

REPORT INFORMATION
  Report Type: Spontaneous
  Country: US (occurrence: None)
  Receive Date: 20150401
  Receipt Date: 20150401
  Transmission Date: 20150821
  Serious: Yes (Disabling)
  Sender: FDA-Public Use
  Company Number: None

PATIENT
  Age: 73 Year
  Sex: Male
  Weight: 113.4 kg

DRUGS (2)
  1. CELEBREX [Suspect]
     Active Substance: CELECOXIB
     Indication: ARTHRITIS
     Route: 048
     Dates: start: 20150101, end: 20150331
  2. CPAP [Concomitant]
     Active Substance: DEVICE

REACTIONS (1)
  - Therapeutic response changed [None]

NARRATIVE: CASE EVENT DATE: 20150303
